FAERS Safety Report 11537161 (Version 8)
Quarter: 2018Q2

REPORT INFORMATION
  Report Type: Spontaneous
  Country: SE (occurrence: SE)
  Receive Date: 20150922
  Receipt Date: 20180528
  Transmission Date: 20180711
  Serious: Yes (Hospitalization, Other)
  Sender: FDA-Public Use
  Company Number: PHHY2015SE111095

PATIENT
  Age: 63 Year
  Sex: Male

DRUGS (9)
  1. TACROLIMUS. [Suspect]
     Active Substance: TACROLIMUS
     Indication: IMMUNOSUPPRESSION
     Route: 065
  2. MYCOPHENOLATE MOFETIL. [Suspect]
     Active Substance: MYCOPHENOLATE MOFETIL
     Dosage: 0.5 G, BID
     Route: 065
  3. PREDNISOLONE. [Suspect]
     Active Substance: PREDNISOLONE
     Dosage: 7.5 MG, QD
     Route: 065
  4. EVEROLIMUS. [Suspect]
     Active Substance: EVEROLIMUS
     Indication: IMMUNOSUPPRESSION
     Route: 065
  5. PREDNISOLONE. [Suspect]
     Active Substance: PREDNISOLONE
     Indication: IMMUNOSUPPRESSION
     Dosage: 15 MG, QD
     Route: 065
  6. PREDNISOLONE. [Suspect]
     Active Substance: PREDNISOLONE
     Dosage: 10 MG, QD
     Route: 065
  7. EVEROLIMUS. [Suspect]
     Active Substance: EVEROLIMUS
     Indication: PROPHYLAXIS AGAINST TRANSPLANT REJECTION
     Dosage: TARGET 3 TO 6?G/L, UNKNOWN FREQ. TARGET 3 TO 6?G/L
     Route: 065
  8. MYCOPHENOLATE MOFETIL. [Suspect]
     Active Substance: MYCOPHENOLATE MOFETIL
     Indication: IMMUNOSUPPRESSION
     Dosage: 1 G, BID
     Route: 065
  9. PREDNISOLONE. [Suspect]
     Active Substance: PREDNISOLONE
     Dosage: 20 MG, QD
     Route: 065

REACTIONS (6)
  - Anaemia [Unknown]
  - Pericardial effusion [Unknown]
  - Hepatic enzyme increased [Recovered/Resolved]
  - Gout [Recovered/Resolved]
  - Hepatitis E [Recovering/Resolving]
  - Haemangioma of liver [Recovered/Resolved]
